FAERS Safety Report 12702238 (Version 4)
Quarter: 2017Q1

REPORT INFORMATION
  Report Type: Spontaneous
  Country: JP (occurrence: JP)
  Receive Date: 20160831
  Receipt Date: 20170317
  Transmission Date: 20170428
  Serious: Yes (Death, Life-Threatening, Hospitalization, Other)
  Sender: FDA-Public Use
  Company Number: JP-009507513-1608JPN015000

PATIENT
  Age: 2 Year
  Sex: Female
  Weight: 10 kg

DRUGS (16)
  1. AMPHOTERICIN B. [Concomitant]
     Active Substance: AMPHOTERICIN B
     Indication: SYSTEMIC CANDIDA
     Dosage: 50 MG, UNK
     Route: 041
     Dates: start: 20160616, end: 20160805
  2. MEROPENEM. [Concomitant]
     Active Substance: MEROPENEM
     Dosage: 1.2 G, UNK
     Route: 051
     Dates: start: 20160705, end: 20160805
  3. CIPROFLOXACIN. [Concomitant]
     Active Substance: CIPROFLOXACIN
     Dosage: 100 MG, UNK
     Route: 051
     Dates: start: 20160723, end: 20160805
  4. VORICONAZOLE. [Concomitant]
     Active Substance: VORICONAZOLE
     Indication: SYSTEMIC CANDIDA
     Dosage: 160 MG, UNK
     Route: 041
     Dates: start: 20160723, end: 20160805
  5. CANCIDAS [Suspect]
     Active Substance: CASPOFUNGIN ACETATE
     Indication: SYSTEMIC CANDIDA
     Dosage: 35 MG, QD
     Route: 041
     Dates: start: 20160705, end: 20160705
  6. CANCIDAS [Suspect]
     Active Substance: CASPOFUNGIN ACETATE
     Dosage: 35 MG, QD
     Route: 041
     Dates: start: 20160723, end: 20160805
  7. FUROSEMIDE. [Concomitant]
     Active Substance: FUROSEMIDE
     Dosage: 30 MG, UNK
     Route: 051
     Dates: end: 20160806
  8. NICARDIPINE HYDROCHLORIDE. [Concomitant]
     Active Substance: NICARDIPINE HYDROCHLORIDE
     Dosage: UNK
     Route: 051
     Dates: end: 20160731
  9. CANCIDAS [Suspect]
     Active Substance: CASPOFUNGIN ACETATE
     Dosage: 25 MG, QD
     Route: 041
     Dates: start: 20160706, end: 20160722
  10. PREDNISOLONE SODIUM PHOSPHATE. [Suspect]
     Active Substance: PREDNISOLONE SODIUM PHOSPHATE
     Dosage: 21 MG, UNK
     Route: 051
     Dates: end: 20160805
  11. DEXAMETHASONE PALMITATE [Suspect]
     Active Substance: DEXAMETHASONE
     Dosage: 5 MG, UNK
     Route: 051
     Dates: end: 20160804
  12. ACICLOVIR [Concomitant]
     Active Substance: ACYCLOVIR
     Indication: PROPHYLAXIS
     Dosage: 100 MG, UNK
     Route: 051
     Dates: start: 20160621, end: 20160805
  13. LENOGRASTIM [Concomitant]
     Active Substance: LENOGRASTIM
     Indication: PROPHYLAXIS
     Dosage: 50 MICROGRAM, UNK
     Route: 051
     Dates: start: 20160625, end: 20160805
  14. TACROLIMUS HYDRATE [Concomitant]
     Active Substance: TACROLIMUS
     Indication: PROPHYLAXIS
     Dosage: UNK
     Route: 051
     Dates: start: 20160619, end: 20160806
  15. TEICOPLANIN [Concomitant]
     Active Substance: TEICOPLANIN
     Dosage: 100 MG, UNK
     Route: 051
     Dates: start: 20160703, end: 20160805
  16. DALTEPARIN SODIUM [Concomitant]
     Active Substance: DALTEPARIN SODIUM
     Indication: PROPHYLAXIS
     Dosage: 790 IU, UNK
     Route: 051
     Dates: start: 20160616, end: 20160805

REACTIONS (3)
  - Histiocytosis haematophagic [Fatal]
  - Bacterial infection [Fatal]
  - Fungal infection [Fatal]

NARRATIVE: CASE EVENT DATE: 20160723
